FAERS Safety Report 13531981 (Version 1)
Quarter: 2017Q2

REPORT INFORMATION
  Report Type: Spontaneous
  Country: FR (occurrence: FR)
  Receive Date: 20170510
  Receipt Date: 20170510
  Transmission Date: 20170830
  Serious: Yes (Other)
  Sender: FDA-Public Use
  Company Number: FR-GLAXOSMITHKLINE-FR2017GSK067371

PATIENT
  Age: 60 Year
  Sex: Male

DRUGS (1)
  1. NICOPASS [Suspect]
     Active Substance: NICOTINE
     Indication: SMOKING CESSATION THERAPY
     Dosage: 10 DF, 1D

REACTIONS (3)
  - Drug use disorder [Unknown]
  - Intentional product use issue [Unknown]
  - Gingival recession [Unknown]
